FAERS Safety Report 18211653 (Version 1)
Quarter: 2020Q3

REPORT INFORMATION
  Report Type: Other
  Country: US (occurrence: US)
  Receive Date: 20200831
  Receipt Date: 20200831
  Transmission Date: 20201103
  Serious: Yes (Hospitalization)
  Sender: FDA-Public Use
  Company Number: US-ROCHE-2664365

PATIENT
  Age: 64 Year
  Sex: Female
  Weight: 77.63 kg

DRUGS (10)
  1. TIZANIDINE. [Concomitant]
     Active Substance: TIZANIDINE
     Dosage: AT NIGHT STARTED PROBABLY 5 YEARS AGO ;ONGOING: YES
     Route: 048
  2. VITAMIN D3 [Concomitant]
     Active Substance: CHOLECALCIFEROL
     Dosage: STARTED PROBABLY 5 YEARS AGO ;ONGOING: YES
     Route: 048
  3. SINGULAIR [Concomitant]
     Active Substance: MONTELUKAST SODIUM
     Indication: SEASONAL ALLERGY
     Dosage: AT NIGHT STARTED ABOUT 1 YEAR AGO ;ONGOING: YES
     Route: 048
  4. OCRELIZUMAB. [Suspect]
     Active Substance: OCRELIZUMAB
     Indication: RELAPSING-REMITTING MULTIPLE SCLEROSIS
     Dosage: FULL DOSE ;ONGOING: YES
     Route: 042
     Dates: start: 2018
  5. TIZANIDINE. [Concomitant]
     Active Substance: TIZANIDINE
     Indication: MUSCLE SPASMS
     Dosage: STARTED PROBABLY 5 YEARS AGO IN MORNING ;ONGOING: YES
     Route: 048
  6. TYLENOL [Concomitant]
     Active Substance: ACETAMINOPHEN
     Dosage: LIQUID ;ONGOING: UNKNOWN
     Route: 048
  7. DEXAMETHASONE. [Concomitant]
     Active Substance: DEXAMETHASONE
  8. AMPYRA [Concomitant]
     Active Substance: DALFAMPRIDINE
     Dosage: STARTED BETTER THAN 10 YEARS AGO ;ONGOING: YES
     Route: 048
  9. REMDESIVIR. [Concomitant]
     Active Substance: REMDESIVIR
     Dosage: 64 UNITS 3 TIMES PER DAY
  10. PROAIR HFA [Concomitant]
     Active Substance: ALBUTEROL SULFATE
     Indication: SEASONAL ALLERGY
     Dosage: STARTED ABOUT 1 YEAR AGO 2 PUFFS AT NIGHT ;ONGOING: YES
     Route: 055

REACTIONS (10)
  - Muscular weakness [Recovered/Resolved]
  - Delirium [Recovered/Resolved]
  - Loss of consciousness [Recovered/Resolved]
  - Wheezing [Not Recovered/Not Resolved]
  - Balance disorder [Not Recovered/Not Resolved]
  - Asthenia [Not Recovered/Not Resolved]
  - Gait disturbance [Not Recovered/Not Resolved]
  - Pain [Not Recovered/Not Resolved]
  - COVID-19 pneumonia [Recovered/Resolved]
  - Intervertebral disc protrusion [Not Recovered/Not Resolved]

NARRATIVE: CASE EVENT DATE: 2019
